FAERS Safety Report 4878122-0 (Version None)
Quarter: 2006Q1

REPORT INFORMATION
  Report Type: 
  Country: None (occurrence: None)
  Receive Date: 20060110
  Receipt Date: 20051230
  Transmission Date: 20060701
  Serious: Yes (Congenital Anomaly)
  Sender: FDA-Public Use
  Company Number: B0405514A

PATIENT
  Sex: 0

DRUGS (2)
  1. RETROVIR [Suspect]
  2. RETROVIR [Suspect]
     Dosage: TRANSPLACENTARY
     Route: 064

REACTIONS (4)
  - ANAEMIA NEONATAL [None]
  - DRUG EXPOSURE DURING PREGNANCY [None]
  - SKULL MALFORMATION [None]
  - SMALL FOR DATES BABY [None]
